FAERS Safety Report 5103757-X (Version None)
Quarter: 2006Q3

REPORT INFORMATION
  Report Type: 
  Country: None (occurrence: None)
  Receive Date: 20060913
  Receipt Date: 20060907
  Transmission Date: 20061208
  Serious: Yes (Death)
  Sender: FDA-Public Use
  Company Number: KR-SANOFI-SYNTHELABO-A01200607393

PATIENT

DRUGS (3)
  1. FLUOROURACIL [Concomitant]
     Indication: COLON CANCER
     Dosage: UNK
     Route: 065
  2. LEUCOVORIN [Concomitant]
     Indication: COLON CANCER
     Dosage: UNK
     Route: 065
  3. ELOXATIN [Suspect]
     Indication: COLON CANCER
     Dosage: UNK
     Route: 042

REACTIONS (1)
  - DEATH [None]
